FAERS Safety Report 8505554-1 (Version None)
Quarter: 2012Q3

REPORT INFORMATION
  Report Type: 
  Country: None (occurrence: None)
  Receive Date: 20120703
  Receipt Date: 20120621
  Transmission Date: 20120928
  Serious: Yes (Death, Other)
  Sender: FDA-Public Use
  Company Number: ENTC2012-0286

PATIENT
  Age: 79 Year
  Sex: Female

DRUGS (2)
  1. STALEVO 50 [Suspect]
     Indication: MUSCLE RIGIDITY
     Dosage: SEE IMAGE
     Route: 048
  2. ISRADIPINE [Suspect]
     Indication: UNEVALUABLE EVENT
     Dosage: 1 DF DAILY, STRENGTH: 5MG, STOPPED (FROM APPROXIMATELY 10 YEARS)

REACTIONS (5)
  - ASTHENIA [None]
  - HYPOTENSION [None]
  - HEART RATE IRREGULAR [None]
  - RESPIRATORY DISORDER [None]
  - NAUSEA [None]
